FAERS Safety Report 5867290-X (Version None)
Quarter: 2008Q4

REPORT INFORMATION
  Report Type: 
  Country: None (occurrence: None)
  Receive Date: 20080829
  Receipt Date: 20080829
  Transmission Date: 20090506
  Serious: No
  Sender: FDA-Public Use
  Company Number: None

PATIENT
  Sex: Female
  Weight: 44.9 kg

DRUGS (2)
  1. FLUOROURACIL [Suspect]
     Dosage: 595MG
  2. LEUCOVORIN CALCIUM [Suspect]
     Dosage: 28 MG

REACTIONS (1)
  - NEUTROPHIL COUNT DECREASED [None]
